FAERS Safety Report 5289309-X (Version None)
Quarter: 2007Q2

REPORT INFORMATION
  Report Type: 
  Country: None (occurrence: None)
  Receive Date: 20070406
  Receipt Date: 20070402
  Transmission Date: 20071010
  Serious: Yes (Other)
  Sender: FDA-Public Use
  Company Number: US-JNJFOC-20070400892

PATIENT
  Sex: Female
  Weight: 78.47 kg

DRUGS (4)
  1. RISPERDAL [Suspect]
     Indication: DRUG USE FOR UNKNOWN INDICATION
     Route: 048
  2. PAXIL [Concomitant]
     Indication: DEPRESSION
  3. LUNESTA [Concomitant]
     Indication: SLEEP DISORDER
     Route: 048
  4. INDERAL [Concomitant]
     Indication: ANXIETY
     Route: 048

REACTIONS (3)
  - HYPERTENSION [None]
  - PLEURITIC PAIN [None]
  - THROMBOSIS [None]
